FAERS Safety Report 4300954-8 (Version None)
Quarter: 2004Q1

REPORT INFORMATION
  Report Type: 
  Country: None (occurrence: None)
  Receive Date: 20040219
  Receipt Date: 20040209
  Transmission Date: 20041129
  Serious: No
  Sender: FDA-Public Use
  Company Number: 04P-167-0250100-00

PATIENT
  Age: 103 Year
  Sex: Female

DRUGS (5)
  1. ERYTHROMYCIN [Suspect]
     Indication: CELLULITIS
     Dosage: 1 GM, 2 IN 1 D, ORAL
     Route: 048
     Dates: start: 20040123, end: 20040124
  2. ZOPLICONE (ZOPICLONE) [Suspect]
     Dosage: 7.5 MG, 1 IN 1 D, ORAL
     Route: 048
  3. FUROSEMIDE [Concomitant]
  4. PANTOPRAZOLE SODIUM [Concomitant]
  5. ACETAMINOPHEN AND CODEINE PHOSPHATE [Concomitant]

REACTIONS (4)
  - CONFUSIONAL STATE [None]
  - DRUG INTERACTION [None]
  - DRUG LEVEL INCREASED [None]
  - IRRITABILITY [None]
